FAERS Safety Report 8338955-5 (Version None)
Quarter: 2012Q2

REPORT INFORMATION
  Report Type: 
  Country: None (occurrence: None)
  Receive Date: 20120507
  Receipt Date: 20120427
  Transmission Date: 20120825
  Serious: Yes (Other)
  Sender: FDA-Public Use
  Company Number: US-BRISTOL-MYERS SQUIBB COMPANY-15811821

PATIENT
  Age: 56 Year
  Sex: Male

DRUGS (22)
  1. INSULIN ASPART [Suspect]
     Indication: DIABETES MELLITUS
  2. PLACEBO [Suspect]
     Indication: TYPE 2 DIABETES MELLITUS
     Dates: start: 20100716
  3. BACTRIM DS [Concomitant]
     Indication: SINUSITIS
     Route: 048
  4. TACROLIMUS [Concomitant]
     Indication: LIVER TRANSPLANT
     Route: 048
  5. CALCITRIOL [Concomitant]
     Indication: HYPERPARATHYROIDISM
     Route: 048
  6. FAMOTIDINE [Concomitant]
     Indication: GASTROOESOPHAGEAL REFLUX DISEASE
     Route: 048
  7. ASPIRIN [Concomitant]
  8. DOCUSATE [Concomitant]
     Indication: CONSTIPATION
     Route: 048
  9. DIAZEPAM [Concomitant]
     Indication: ANXIETY
     Route: 048
  10. FLUTICASONE FUROATE [Concomitant]
     Indication: RHINITIS ALLERGIC
     Route: 045
  11. IBUPROFEN [Concomitant]
     Indication: HEADACHE
     Route: 048
  12. MAGNESIUM OXIDE [Concomitant]
     Route: 048
  13. PSYLLIUM [Concomitant]
     Indication: CONSTIPATION
     Route: 048
  14. CETIRIZINE [Concomitant]
     Indication: RHINITIS ALLERGIC
     Route: 048
  15. INSULIN GLARGINE [Suspect]
     Indication: DIABETES MELLITUS
     Dosage: 54IU ALSO TAKEN
  16. SANTYL [Concomitant]
     Indication: DIABETIC FOOT
  17. ZOLPIDEM [Concomitant]
     Indication: INSOMNIA
     Route: 048
  18. LACTULOSE [Concomitant]
     Indication: CONSTIPATION
     Route: 048
  19. AUGMENTIN [Concomitant]
     Indication: SINUSITIS
     Route: 048
  20. AMMONIUM LACTATE [Concomitant]
     Indication: DRY SKIN
  21. BLINDED: SAXAGLIPTIN [Suspect]
     Indication: TYPE 2 DIABETES MELLITUS
     Dosage: 1DF= 2.5 MG / 5 MG
     Dates: start: 20100716
  22. ERGOCALCIFEROL [Concomitant]
     Indication: VITAMIN D DEFICIENCY
     Route: 048

REACTIONS (1)
  - HERPES ZOSTER INFECTION NEUROLOGICAL [None]
